FAERS Safety Report 9947599 (Version 1)
Quarter: 2014Q1

REPORT INFORMATION
  Report Type: Report from Study
  Country: US (occurrence: US)
  Receive Date: 20140303
  Receipt Date: 20140303
  Transmission Date: 20141002
  Serious: No
  Sender: FDA-Public Use
  Company Number: US-ABBVIE-13P-163-1061969-00

PATIENT
  Age: 70 Year
  Sex: Female
  Weight: 57.66 kg

DRUGS (5)
  1. HUMIRA [Suspect]
     Indication: CROHN^S DISEASE
     Route: 058
     Dates: start: 20111207, end: 20111207
  2. HUMIRA [Suspect]
     Route: 058
     Dates: start: 20111221, end: 20111221
  3. HUMIRA [Suspect]
     Route: 058
     Dates: start: 20120104
  4. MULTIVITAMINS [Concomitant]
     Indication: CROHN^S DISEASE
  5. VITAMIN E [Concomitant]
     Indication: PROPHYLAXIS

REACTIONS (8)
  - Back injury [Not Recovered/Not Resolved]
  - Movement disorder [Recovering/Resolving]
  - Back pain [Not Recovered/Not Resolved]
  - Fatigue [Not Recovered/Not Resolved]
  - Spinal compression fracture [Unknown]
  - Arthralgia [Not Recovered/Not Resolved]
  - Full blood count decreased [Unknown]
  - Unevaluable event [Unknown]
